FAERS Safety Report 15578320 (Version 2)
Quarter: 2018Q4

REPORT INFORMATION
  Report Type: Report from Study
  Country: JP (occurrence: JP)
  Receive Date: 20181102
  Receipt Date: 20181224
  Transmission Date: 20190205
  Serious: Yes (Death, Hospitalization, Other)
  Sender: FDA-Public Use
  Company Number: JP-ROCHE-2151608

PATIENT
  Age: 75 Year
  Sex: Male
  Weight: 49 kg

DRUGS (11)
  1. CARBOPLATIN. [Suspect]
     Active Substance: CARBOPLATIN
     Indication: LUNG ADENOCARCINOMA
     Route: 065
     Dates: start: 20180316, end: 20180523
  2. ATEZOLIZUMAB. [Suspect]
     Active Substance: ATEZOLIZUMAB
     Indication: NON-SMALL CELL LUNG CANCER
     Route: 041
     Dates: start: 20180613, end: 20180613
  3. ZYLORIC [Concomitant]
     Active Substance: ALLOPURINOL
     Route: 048
  4. PREDONINE [Suspect]
     Active Substance: PREDNISOLONE
     Indication: PRODUCT USED FOR UNKNOWN INDICATION
     Route: 048
     Dates: start: 20180705, end: 20180716
  5. ASTOMIN (JAPAN) [Concomitant]
     Route: 048
  6. ATEZOLIZUMAB. [Suspect]
     Active Substance: ATEZOLIZUMAB
     Indication: LUNG ADENOCARCINOMA
  7. GASMOTIN [Concomitant]
     Active Substance: MOSAPRIDE CITRATE
     Route: 048
  8. NEXIUM [Concomitant]
     Active Substance: ESOMEPRAZOLE MAGNESIUM
     Route: 048
  9. PEMETREXED SODIUM HYDRATE [Concomitant]
     Active Substance: PEMETREXED
     Indication: LUNG ADENOCARCINOMA
     Dosage: DOSAGE IS UNCERTAIN.
     Route: 065
     Dates: start: 20180316, end: 20180523
  10. SOLU-MEDROL [Suspect]
     Active Substance: METHYLPREDNISOLONE SODIUM SUCCINATE
     Indication: PRODUCT USED FOR UNKNOWN INDICATION
     Route: 042
     Dates: start: 20180702, end: 20180704
  11. AVASTIN [Suspect]
     Active Substance: BEVACIZUMAB
     Indication: LUNG ADENOCARCINOMA
     Dosage: DOSAGE IS UNCERTAIN.
     Route: 041
     Dates: start: 20180316, end: 20180523

REACTIONS (13)
  - Choking sensation [Unknown]
  - Pneumonia [Unknown]
  - Bronchial oedema [Unknown]
  - Tachycardia [Unknown]
  - Oral candidiasis [Unknown]
  - Blood pressure decreased [Unknown]
  - Pleural effusion [Unknown]
  - Pulmonary cavitation [Unknown]
  - Gallbladder enlargement [Unknown]
  - Liver disorder [Fatal]
  - Anaemia macrocytic [Unknown]
  - Bronchial haemorrhage [Unknown]
  - Ascites [Unknown]

NARRATIVE: CASE EVENT DATE: 20180604
